FAERS Safety Report 26191579 (Version 1)
Quarter: 2025Q4

REPORT INFORMATION
  Report Type: Spontaneous
  Country: JP (occurrence: JP)
  Receive Date: 20251223
  Receipt Date: 20251223
  Transmission Date: 20260117
  Serious: Yes (Hospitalization, Other)
  Sender: RISING PHARMACEUTICALS
  Company Number: JP-RISINGPHARMA-JP-2025RISLIT00649

PATIENT
  Age: 12 Year
  Sex: Female
  Weight: 45.5 kg

DRUGS (3)
  1. METHIMAZOLE [Suspect]
     Active Substance: METHIMAZOLE
     Indication: Graves^ disease
     Route: 065
  2. METHIMAZOLE [Suspect]
     Active Substance: METHIMAZOLE
     Route: 065
  3. METOPROLOL TARTRATE [Suspect]
     Active Substance: METOPROLOL TARTRATE
     Indication: Graves^ disease
     Route: 065

REACTIONS (4)
  - Thyrotoxic myopathy [Recovering/Resolving]
  - Condition aggravated [Recovering/Resolving]
  - Muscular weakness [Recovering/Resolving]
  - Dysstasia [Recovering/Resolving]
